FAERS Safety Report 14350180 (Version 1)
Quarter: 2018Q1

REPORT INFORMATION
  Report Type: Spontaneous
  Country: JP (occurrence: JP)
  Receive Date: 20180104
  Receipt Date: 20180104
  Transmission Date: 20180509
  Serious: Yes (Hospitalization, Other)
  Sender: FDA-Public Use
  Company Number: JP-009507513-1710JPN002244J

PATIENT
  Age: 78 Year
  Sex: Female

DRUGS (3)
  1. ALENDRONATE SODIUM. [Suspect]
     Active Substance: ALENDRONATE SODIUM
     Dosage: UNK
     Route: 048
  2. TERIPARATIDE ACETATE [Concomitant]
     Active Substance: TERIPARATIDE ACETATE
     Indication: PELVIC FRACTURE
     Dosage: UNK
     Route: 051
  3. MINODRONIC ACID HYDRATE [Suspect]
     Active Substance: MINODRONIC ACID
     Indication: PELVIC FRACTURE
     Dosage: UNK
     Route: 048

REACTIONS (2)
  - Pelvic fracture [Unknown]
  - Atypical femur fracture [Unknown]
